FAERS Safety Report 9511307 (Version 1)
Quarter: 2013Q3

REPORT INFORMATION
  Report Type: Spontaneous
  Country: US (occurrence: None)
  Receive Date: 20130909
  Receipt Date: 20130909
  Transmission Date: 20140515
  Serious: Yes (Life-Threatening, Disabling)
  Sender: FDA-Public Use
  Company Number: None

PATIENT
  Age: 41 Year
  Sex: Male
  Weight: 68 kg

DRUGS (2)
  1. OMNARIS [Suspect]
     Indication: NASAL POLYPS
     Dosage: 2SPRAY PER NOSTRIL
     Route: 030
  2. AMOXICILLIN [Concomitant]

REACTIONS (1)
  - Vision blurred [None]
